FAERS Safety Report 5702810-7 (Version None)
Quarter: 2008Q2

REPORT INFORMATION
  Report Type: 
  Country: None (occurrence: None)
  Receive Date: 20080411
  Receipt Date: 20080403
  Transmission Date: 20081010
  Serious: Yes (Other)
  Sender: FDA-Public Use
  Company Number: US-ELI_LILLY_AND_COMPANY-US200804000893

PATIENT
  Sex: Female

DRUGS (4)
  1. HUMALOG MIX 50/50 [Suspect]
  2. HUMALOG [Suspect]
  3. HUMULIN 70/30 [Suspect]
  4. PREDNISONE [Concomitant]

REACTIONS (11)
  - ABASIA [None]
  - BACK PAIN [None]
  - BLOOD GLUCOSE DECREASED [None]
  - EXOSTOSIS [None]
  - HIP SURGERY [None]
  - INTERVERTEBRAL DISC DEGENERATION [None]
  - MACULAR DEGENERATION [None]
  - PERIPHERAL EMBOLISM [None]
  - PHARMACEUTICAL PRODUCT COMPLAINT [None]
  - VISUAL ACUITY REDUCED [None]
  - WRONG DRUG ADMINISTERED [None]
